FAERS Safety Report 6133511-1 (Version None)
Quarter: 2009Q1

REPORT INFORMATION
  Report Type: 
  Country: None (occurrence: None)
  Receive Date: 20090326
  Receipt Date: 20090316
  Transmission Date: 20090719
  Serious: Yes (Hospitalization)
  Sender: FDA-Public Use
  Company Number: PHHY2009JP05793

PATIENT
  Sex: Female
  Weight: 147 kg

DRUGS (7)
  1. DIOVAN [Suspect]
     Indication: HYPERTENSION
     Dosage: 40 MG, QD
     Route: 048
     Dates: start: 20070919, end: 20071023
  2. DIOVAN [Suspect]
     Dosage: 80 MG, QD
     Route: 048
     Dates: start: 20071024, end: 20080109
  3. RISPERDAL [Concomitant]
     Dosage: 1 MG
     Route: 048
     Dates: start: 20070919, end: 20080109
  4. RISPERDAL [Concomitant]
     Dosage: 2 MG
     Route: 048
     Dates: end: 20080109
  5. BIPERIDEN HYDROCHLORIDE TAB [Concomitant]
     Dosage: 2 MG
     Route: 048
     Dates: start: 20070919, end: 20080109
  6. ARICEPT [Concomitant]
     Dosage: 5 MG
     Route: 048
     Dates: start: 20070919, end: 20080109
  7. GLAKAY [Concomitant]
     Dosage: 45 MG
     Route: 048
     Dates: start: 20070919, end: 20080109

REACTIONS (3)
  - BRAIN STEM INFARCTION [None]
  - DRUG INEFFECTIVE [None]
  - LOSS OF CONSCIOUSNESS [None]
